FAERS Safety Report 20595663 (Version 1)
Quarter: 2022Q1

REPORT INFORMATION
  Report Type: Spontaneous
  Country: US (occurrence: None)
  Receive Date: 20220314
  Receipt Date: 20220314
  Transmission Date: 20220423
  Serious: Yes (Disabling)
  Sender: FDA-Public Use
  Company Number: None

PATIENT
  Age: 13 Year
  Sex: Male
  Weight: 65.7 kg

DRUGS (1)
  1. SINGULAIR [Suspect]
     Active Substance: MONTELUKAST SODIUM
     Indication: Rhinitis allergic
     Dosage: FREQUENCY : AT BEDTIME;?
     Route: 048

REACTIONS (11)
  - Depression [None]
  - Suicidal ideation [None]
  - Aggression [None]
  - Anger [None]
  - Insomnia [None]
  - Disturbance in attention [None]
  - Papilloedema [None]
  - Anxiety [None]
  - Tic [None]
  - Educational problem [None]
  - Intracranial pressure increased [None]

NARRATIVE: CASE EVENT DATE: 20170706
